FAERS Safety Report 12908801 (Version 1)
Quarter: 2016Q4

REPORT INFORMATION
  Report Type: Spontaneous
  Country: US (occurrence: US)
  Receive Date: 20161103
  Receipt Date: 20161103
  Transmission Date: 20170207
  Serious: No
  Sender: FDA-Public Use
  Company Number: US-BIOMARINAP-US-2016-111696

PATIENT
  Sex: Female
  Weight: 25.1 kg

DRUGS (1)
  1. KUVAN [Suspect]
     Active Substance: SAPROPTERIN DIHYDROCHLORIDE
     Indication: PHENYLKETONURIA
     Dosage: 200 MG, QD
     Route: 048
     Dates: start: 201609

REACTIONS (3)
  - Abdominal discomfort [Unknown]
  - Amino acid level increased [Unknown]
  - Drug ineffective [Unknown]
